FAERS Safety Report 23291051 (Version 14)
Quarter: 2025Q3

REPORT INFORMATION
  Report Type: Report from Study
  Country: US (occurrence: US)
  Receive Date: 20231213
  Receipt Date: 20250905
  Transmission Date: 20251020
  Serious: Yes (Other)
  Sender: TAKEDA
  Company Number: US-TAKEDA-2023TUS089823

PATIENT
  Sex: Female
  Weight: 45 kg

DRUGS (12)
  1. HUMAN IMMUNOGLOBULIN G [Suspect]
     Active Substance: HUMAN IMMUNOGLOBULIN G
     Indication: IgG deficiency
     Dosage: 13 GRAM, Q2WEEKS
  2. HUMAN IMMUNOGLOBULIN G [Suspect]
     Active Substance: HUMAN IMMUNOGLOBULIN G
     Dosage: 14 GRAM, Q2WEEKS
  3. ACETAMINOPHEN [Concomitant]
     Active Substance: ACETAMINOPHEN
  4. TIROSINT-SOL [Concomitant]
     Active Substance: LEVOTHYROXINE SODIUM
  5. SPIRONOLACTONE [Concomitant]
     Active Substance: SPIRONOLACTONE
  6. Omega [Concomitant]
  7. DOXYCYCLINE HYCLATE [Concomitant]
     Active Substance: DOXYCYCLINE HYCLATE
  8. FLONASE ALLERGY RELIEF [Concomitant]
     Active Substance: FLUTICASONE PROPIONATE
  9. LIDOCAINE\PRILOCAINE [Concomitant]
     Active Substance: LIDOCAINE\PRILOCAINE
  10. BUPROPION HYDROCHLORIDE [Concomitant]
     Active Substance: BUPROPION HYDROCHLORIDE
  11. DIPHENHYDRAMINE HYDROCHLORIDE [Concomitant]
     Active Substance: DIPHENHYDRAMINE HYDROCHLORIDE
  12. ZYRTEC [Concomitant]
     Active Substance: CETIRIZINE HYDROCHLORIDE

REACTIONS (29)
  - Addison^s disease [Unknown]
  - Loss of consciousness [Unknown]
  - Sinus disorder [Unknown]
  - Cystitis [Unknown]
  - Gastrointestinal infection [Unknown]
  - Multiple allergies [Unknown]
  - Hair colour changes [Unknown]
  - Gastric infection [Unknown]
  - Neutrophil count decreased [Unknown]
  - Weight decreased [Unknown]
  - Dermatitis contact [Unknown]
  - Insurance issue [Unknown]
  - Product use issue [Unknown]
  - Gastroenteritis viral [Unknown]
  - Infection [Unknown]
  - Epstein-Barr virus infection [Unknown]
  - Injection site bruising [Unknown]
  - Upper respiratory tract infection [Unknown]
  - Infusion site haemorrhage [Recovering/Resolving]
  - Infusion site mass [Recovering/Resolving]
  - Sinusitis [Unknown]
  - Feeling abnormal [Unknown]
  - White blood cell count decreased [Unknown]
  - Infusion site bruising [Recovering/Resolving]
  - Burning sensation [Unknown]
  - Pain [Unknown]
  - Hypersensitivity [Unknown]
  - Dizziness [Unknown]
  - Infusion site pain [Recovering/Resolving]
